FAERS Safety Report 18343735 (Version 1)
Quarter: 2020Q4

REPORT INFORMATION
  Report Type: Spontaneous
  Country: US (occurrence: US)
  Receive Date: 20201004
  Receipt Date: 20201004
  Transmission Date: 20210114
  Serious: Yes (Hospitalization)
  Sender: FDA-Public Use
  Company Number: None

PATIENT
  Age: 73 Year
  Sex: Male
  Weight: 93.92 kg

DRUGS (9)
  1. CAPECITABINE. [Suspect]
     Active Substance: CAPECITABINE
     Indication: COLON CANCER
     Route: 048
     Dates: start: 20200629, end: 20200915
  2. LACTULOSE. [Concomitant]
     Active Substance: LACTULOSE
  3. COLACE [Concomitant]
     Active Substance: DOCUSATE SODIUM
  4. MULTIVITAMIN [Concomitant]
     Active Substance: VITAMINS
  5. POTASSIUM CITRATE 99MG [Concomitant]
  6. MIRAPEX 0.5MG [Concomitant]
  7. AMLODIPINE [Concomitant]
     Active Substance: AMLODIPINE BESYLATE
  8. ASPIRIN 325MG [Concomitant]
     Active Substance: ASPIRIN
  9. FERROUS SULFATE 325MG [Concomitant]
     Active Substance: FERROUS SULFATE

REACTIONS (1)
  - Pulmonary embolism [None]

NARRATIVE: CASE EVENT DATE: 20201004
